FAERS Safety Report 6126296-6 (Version None)
Quarter: 2009Q1

REPORT INFORMATION
  Report Type: 
  Country: None (occurrence: None)
  Receive Date: 20090320
  Receipt Date: 20090313
  Transmission Date: 20090719
  Serious: Yes (Hospitalization)
  Sender: FDA-Public Use
  Company Number: JP-MERCK-0903USA02689

PATIENT
  Age: 72 Year
  Sex: Male

DRUGS (7)
  1. HYZAAR [Suspect]
     Route: 048
  2. MS CONTIN [Suspect]
     Route: 048
  3. TS-1 [Suspect]
     Route: 048
  4. LOXONIN [Suspect]
     Route: 048
  5. SELBEX [Suspect]
     Route: 048
  6. ALLORIN [Suspect]
     Route: 048
  7. TOWARAT [Suspect]
     Route: 048

REACTIONS (1)
  - PNEUMONIA [None]
